FAERS Safety Report 21200987 (Version 1)
Quarter: 2022Q3

REPORT INFORMATION
  Report Type: Spontaneous
  Country: US (occurrence: None)
  Receive Date: 20220810
  Receipt Date: 20220810
  Transmission Date: 20221026
  Serious: Yes (Hospitalization)
  Sender: FDA-Public Use
  Company Number: None

PATIENT
  Sex: Female

DRUGS (1)
  1. HUMIRA [Suspect]
     Active Substance: ADALIMUMAB
     Indication: Psoriasis
     Dosage: OTHER QUANTITY : 80 MG/40 MG;?
     Route: 058
     Dates: start: 20220630

REACTIONS (4)
  - White blood cell count increased [None]
  - Hepatic cirrhosis [None]
  - Gastric ulcer [None]
  - Chronic myeloid leukaemia [None]
